FAERS Safety Report 10396034 (Version 1)
Quarter: 2014Q3

REPORT INFORMATION
  Report Type: Spontaneous
  Country: US (occurrence: US)
  Receive Date: 20140820
  Receipt Date: 20140820
  Transmission Date: 20150326
  Serious: Yes (Hospitalization)
  Sender: FDA-Public Use
  Company Number: US-SA-2014SA111471

PATIENT
  Age: 69 Year
  Sex: Female

DRUGS (12)
  1. HYDROCHLOROTHIAZIDE/VALSARTAN [Suspect]
     Active Substance: HYDROCHLOROTHIAZIDE\VALSARTAN
     Indication: PRODUCT USED FOR UNKNOWN INDICATION
     Route: 065
     Dates: end: 201405
  2. COUMADIN [Suspect]
     Active Substance: WARFARIN SODIUM
     Indication: PRODUCT USED FOR UNKNOWN INDICATION
     Route: 065
     Dates: end: 201312
  3. SOTALOL. [Concomitant]
     Active Substance: SOTALOL
  4. IPRATROPIUM BROMIDE/SALBUTAMOL SULFATE [Concomitant]
  5. LASIX [Suspect]
     Active Substance: FUROSEMIDE
     Indication: PRODUCT USED FOR UNKNOWN INDICATION
     Route: 065
     Dates: end: 201405
  6. ADVAIR HFA [Suspect]
     Active Substance: FLUTICASONE PROPIONATE\SALMETEROL XINAFOATE
     Indication: CHRONIC OBSTRUCTIVE PULMONARY DISEASE
     Dosage: DOSE:1 PUFF(S)
     Route: 055
     Dates: start: 1999
  7. CHOLESTEROL- AND TRIGLYCERIDE REDUCERS [Concomitant]
     Active Substance: UNSPECIFIED INGREDIENT
  8. PLAVIX [Concomitant]
     Active Substance: CLOPIDOGREL BISULFATE
     Dates: start: 201312
  9. DIOVAN [Concomitant]
     Active Substance: VALSARTAN
  10. OXYGEN. [Concomitant]
     Active Substance: OXYGEN
  11. ACETYLSALICYLIC ACID [Concomitant]
     Active Substance: ASPIRIN
  12. VOLTAREN [Concomitant]
     Active Substance: DICLOFENAC SODIUM

REACTIONS (22)
  - Cardiac operation [Unknown]
  - Cardiovascular disorder [Unknown]
  - Blood magnesium decreased [Unknown]
  - Lung disorder [Unknown]
  - Asthenia [Unknown]
  - Dyspnoea [Recovered/Resolved]
  - Heart rate decreased [Recovered/Resolved]
  - Cardiac disorder [Unknown]
  - Gait disturbance [Recovered/Resolved]
  - Fluid retention [Unknown]
  - Cardiac pacemaker insertion [Unknown]
  - Abdominal pain upper [Unknown]
  - Blood sodium decreased [Unknown]
  - Pericardial effusion [Unknown]
  - Stent placement [Unknown]
  - Hypertension [Unknown]
  - Blood potassium decreased [Unknown]
  - Arterial stent insertion [Unknown]
  - Chronic obstructive pulmonary disease [Unknown]
  - Dizziness [Unknown]
  - Decreased appetite [Not Recovered/Not Resolved]
  - Chest pain [Recovered/Resolved]

NARRATIVE: CASE EVENT DATE: 201003
